FAERS Safety Report 6654156-0 (Version None)
Quarter: 2010Q1

REPORT INFORMATION
  Report Type: 
  Country: None (occurrence: None)
  Receive Date: 20100326
  Receipt Date: 20100311
  Transmission Date: 20100710
  Serious: Yes (Other)
  Sender: FDA-Public Use
  Company Number: FR-PFIZER INC-2010031506

PATIENT

DRUGS (1)
  1. TAHOR [Suspect]
     Dosage: 10 MG, UNK
     Dates: start: 20100101

REACTIONS (1)
  - WEIGHT DECREASED [None]
